FAERS Safety Report 7987748-7 (Version None)
Quarter: 2011Q4

REPORT INFORMATION
  Report Type: 
  Country: None (occurrence: None)
  Receive Date: 20111216
  Receipt Date: 20110401
  Transmission Date: 20120403
  Serious: Yes (Other)
  Sender: FDA-Public Use
  Company Number: US-BRISTOL-MYERS SQUIBB COMPANY-15362528

PATIENT
  Age: 37 Year
  Sex: Female

DRUGS (2)
  1. ABILIFY [Suspect]
     Indication: BIPOLAR I DISORDER
     Dosage: THERAPY DATES:4JUN,5JUN10
     Route: 048
     Dates: start: 20100603
  2. ABILIFY [Suspect]
     Indication: MAJOR DEPRESSION
     Dosage: THERAPY DATES:4JUN,5JUN10
     Route: 048
     Dates: start: 20100603

REACTIONS (2)
  - FEELING HOT [None]
  - SUICIDAL IDEATION [None]
